FAERS Safety Report 17772061 (Version 1)
Quarter: 2020Q2

REPORT INFORMATION
  Report Type: Spontaneous
  Country: BR (occurrence: BR)
  Receive Date: 20200512
  Receipt Date: 20200512
  Transmission Date: 20200714
  Serious: Yes (Other)
  Sender: FDA-Public Use
  Company Number: BR-ASTRAZENECA-2020SE60867

PATIENT
  Age: 46 Year
  Sex: Female

DRUGS (1)
  1. OSIMERTINIBE [Suspect]
     Active Substance: OSIMERTINIB
     Indication: NON-SMALL CELL LUNG CANCER
     Route: 048

REACTIONS (7)
  - Hernia [Unknown]
  - Anal incontinence [Unknown]
  - Paraparesis [Unknown]
  - Myelitis transverse [Unknown]
  - Asthenia [Unknown]
  - Urinary incontinence [Unknown]
  - Disease progression [Unknown]
